FAERS Safety Report 15672972 (Version 1)
Quarter: 2018Q4

REPORT INFORMATION
  Report Type: Report from Study
  Country: US (occurrence: US)
  Receive Date: 20181129
  Receipt Date: 20181129
  Transmission Date: 20190205
  Serious: No
  Sender: FDA-Public Use
  Company Number: US-TESARO-2018-TSO0840-US

PATIENT
  Age: 82 Year
  Sex: Female

DRUGS (2)
  1. ZEJULA [Suspect]
     Active Substance: NIRAPARIB
     Indication: OVARIAN CANCER
     Dosage: 200 MG, DAILY
     Dates: start: 20180821, end: 20180918
  2. ZEJULA [Suspect]
     Active Substance: NIRAPARIB
     Dosage: 200 MG, DAILY (AT 8 PM AFTER DINNER)
     Dates: start: 20180925

REACTIONS (6)
  - White blood cell count decreased [Recovered/Resolved]
  - Drug ineffective [Unknown]
  - Constipation [Unknown]
  - Carbohydrate antigen 125 increased [Unknown]
  - Heart rate increased [Not Recovered/Not Resolved]
  - Underdose [Unknown]

NARRATIVE: CASE EVENT DATE: 20180918
